FAERS Safety Report 17066584 (Version 1)
Quarter: 2019Q4

REPORT INFORMATION
  Report Type: Spontaneous
  Country: JP (occurrence: JP)
  Receive Date: 20191122
  Receipt Date: 20191122
  Transmission Date: 20200122
  Serious: Yes (Death, Other)
  Sender: FDA-Public Use
  Company Number: JP-FERRINGPH-2019FE07693

PATIENT
  Sex: Male

DRUGS (2)
  1. LEUPLIN [Concomitant]
     Active Substance: LEUPROLIDE ACETATE
     Route: 065
  2. GONAX [Suspect]
     Active Substance: DEGARELIX
     Indication: HORMONE-REFRACTORY PROSTATE CANCER
     Route: 065

REACTIONS (6)
  - Death [Fatal]
  - Off label use [Unknown]
  - Restlessness [Unknown]
  - Performance status decreased [Unknown]
  - Blood pressure decreased [Unknown]
  - Product use in unapproved indication [Unknown]
